FAERS Safety Report 5971277-6 (Version None)
Quarter: 2008Q4

REPORT INFORMATION
  Report Type: 
  Country: None (occurrence: None)
  Receive Date: 20081128
  Receipt Date: 20081124
  Transmission Date: 20090506
  Serious: Yes (Other)
  Sender: FDA-Public Use
  Company Number: DE-PFIZER INC-2008089227

PATIENT
  Sex: Female
  Weight: 105 kg

DRUGS (10)
  1. AROMASIN [Suspect]
     Indication: BREAST CANCER
     Route: 048
     Dates: start: 20080711, end: 20080820
  2. CARMEN [Concomitant]
     Route: 048
  3. METOPROLOL TARTRATE [Concomitant]
     Route: 048
  4. HYDROCHLOROTHIAZIDE/OLMESARTAN MEDOXOMIL [Concomitant]
     Route: 048
  5. FUROSEMID ^STADA^ [Concomitant]
     Route: 048
  6. ALLOPURINOL [Concomitant]
     Route: 048
  7. SIMVASTATIN [Concomitant]
     Route: 048
  8. MARCUMAR [Concomitant]
     Route: 048
  9. METAMIZOLE [Concomitant]
     Route: 048
  10. METOCLOPRAMIDE [Concomitant]
     Route: 048

REACTIONS (2)
  - LIVER FUNCTION TEST ABNORMAL [None]
  - PROTHROMBIN TIME SHORTENED [None]
